FAERS Safety Report 7606933-7 (Version None)
Quarter: 2011Q3

REPORT INFORMATION
  Report Type: 
  Country: None (occurrence: None)
  Receive Date: 20110713
  Receipt Date: 20110628
  Transmission Date: 20111222
  Serious: Yes (Death)
  Sender: FDA-Public Use
  Company Number: US-PFIZER INC-2008153746

PATIENT
  Age: 34 Year
  Sex: Male

DRUGS (11)
  1. ATENOLOL [Suspect]
     Dosage: UNK
     Dates: end: 20070101
  2. GEMFIBROZIL [Suspect]
     Dosage: UNK
     Route: 048
     Dates: end: 20070101
  3. OXYCODONE [Suspect]
     Dosage: UNK
     Route: 048
     Dates: end: 20070101
  4. PHENYTOIN [Suspect]
     Dosage: UNK
     Route: 048
     Dates: end: 20070101
  5. COLCHICINE [Suspect]
     Dosage: UNK
     Route: 048
     Dates: end: 20070101
  6. INDOMETHACIN [Suspect]
     Dosage: UNK
     Route: 048
     Dates: end: 20070101
  7. MIRTAZAPINE [Suspect]
     Dosage: UNK
     Dates: end: 20070101
  8. FENOFIBRATE [Suspect]
     Dosage: UNK
     Route: 048
     Dates: end: 20070101
  9. LOSARTAN [Suspect]
     Dosage: UNK
     Route: 048
     Dates: end: 20070101
  10. HALOPERIDOL [Suspect]
     Dosage: UNK
     Route: 048
     Dates: end: 20070101
  11. TRAZODONE HCL [Suspect]
     Dosage: UNK
     Route: 048
     Dates: end: 20070101

REACTIONS (1)
  - COMPLETED SUICIDE [None]
